FAERS Safety Report 25865254 (Version 1)
Quarter: 2025Q3

REPORT INFORMATION
  Report Type: Spontaneous
  Country: US (occurrence: None)
  Receive Date: 20250930
  Receipt Date: 20250930
  Transmission Date: 20251021
  Serious: No
  Sender: FDA-CTU
  Company Number: None

PATIENT
  Age: 62 Year
  Sex: Female

DRUGS (1)
  1. LEVOTHYROXINE [Suspect]
     Active Substance: LEVOTHYROXINE
     Indication: Hypothyroidism
     Dosage: FREQUENCY : DAILY;?
     Route: 048

REACTIONS (7)
  - Palpitations [None]
  - Nausea [None]
  - Migraine [None]
  - Dry skin [None]
  - Pruritus [None]
  - Alopecia [None]
  - Weight increased [None]

NARRATIVE: CASE EVENT DATE: 20250728
